FAERS Safety Report 5750433-6 (Version None)
Quarter: 2008Q2

REPORT INFORMATION
  Report Type: 
  Country: None (occurrence: None)
  Receive Date: 20080528
  Receipt Date: 20070501
  Transmission Date: 20081010
  Serious: Yes (Other)
  Sender: FDA-Public Use
  Company Number: US-KINGPHARMUSA00001-K200700544

PATIENT

DRUGS (4)
  1. AVINZA [Suspect]
     Indication: PAIN
     Dosage: 90 MG, TID
     Route: 048
     Dates: start: 20060501, end: 20070426
  2. AVINZA [Suspect]
     Dosage: 90 MG, TID
     Route: 048
     Dates: start: 20070427, end: 20070430
  3. TIZANIDINE HCL [Concomitant]
     Route: 048
  4. IBUPROFEN [Concomitant]
     Route: 048

REACTIONS (8)
  - ABASIA [None]
  - DIARRHOEA [None]
  - DRUG INEFFECTIVE [None]
  - HOT FLUSH [None]
  - HYPERHIDROSIS [None]
  - RHINORRHOEA [None]
  - TREMOR [None]
  - WITHDRAWAL SYNDROME [None]
